FAERS Safety Report 13763280 (Version 2)
Quarter: 2017Q4

REPORT INFORMATION
  Report Type: Report from Study
  Country: FR (occurrence: FR)
  Receive Date: 20170718
  Receipt Date: 20171117
  Transmission Date: 20180320
  Serious: Yes (Hospitalization, Other)
  Sender: FDA-Public Use
  Company Number: FR-SHIRE-FR201715408

PATIENT
  Age: 3 Year
  Sex: Female
  Weight: 12.1 kg

DRUGS (17)
  1. VP-16 [Suspect]
     Active Substance: ETOPOSIDE
     Indication: ACUTE LYMPHOCYTIC LEUKAEMIA
     Dosage: 76 MG, UNK
     Route: 042
     Dates: start: 20170301, end: 20170303
  2. METHOTREXATE. [Suspect]
     Active Substance: METHOTREXATE
     Dosage: 2560 MG, UNK
     Route: 042
     Dates: start: 20170213
  3. DAUNORUBICIN [Suspect]
     Active Substance: DAUNORUBICIN
     Indication: ACUTE LYMPHOCYTIC LEUKAEMIA
     Dosage: 15.0 MG, UNK
     Route: 042
     Dates: start: 20161112
  4. CYCLOPHOSPHAMIDE. [Suspect]
     Active Substance: CYCLOPHOSPHAMIDE
     Indication: ACUTE LYMPHOCYTIC LEUKAEMIA
     Dosage: 500 MG, UNK
     Route: 042
     Dates: start: 20161215
  5. DEXAMETHASONE. [Suspect]
     Active Substance: DEXAMETHASONE
     Indication: ACUTE LYMPHOCYTIC LEUKAEMIA
     Dosage: 5.4 MG, UNK
     Route: 048
     Dates: start: 20170523, end: 20170612
  6. VINCRISTINE [Suspect]
     Active Substance: VINCRISTINE
     Dosage: 0.7 MG, UNK
     Route: 042
     Dates: start: 20161112
  7. PEGASPARGASE [Suspect]
     Active Substance: PEGASPARGASE
     Dosage: 1275 IU, UNK
     Route: 042
     Dates: start: 20161116, end: 20161116
  8. METHOTREXATE. [Suspect]
     Active Substance: METHOTREXATE
     Dosage: 12 MG, UNK
     Route: 037
     Dates: start: 20161107
  9. DEXAMETHASONE. [Suspect]
     Active Substance: DEXAMETHASONE
     Dosage: 5 MG, UNK
     Route: 048
     Dates: start: 20161112
  10. PEGASPARGASE [Suspect]
     Active Substance: PEGASPARGASE
     Indication: ACUTE LYMPHOCYTIC LEUKAEMIA
     Dosage: 1350 UNK, UNK
     Route: 042
     Dates: start: 20170526
  11. METHOTREXATE. [Suspect]
     Active Substance: METHOTREXATE
     Indication: ACUTE LYMPHOCYTIC LEUKAEMIA
     Dosage: 10 UNK, UNK
     Route: 037
     Dates: start: 20170526
  12. VINCRISTINE [Suspect]
     Active Substance: VINCRISTINE
     Indication: ACUTE LYMPHOCYTIC LEUKAEMIA
     Dosage: 0.8 UNK, UNK
     Route: 042
     Dates: start: 20170523, end: 20170711
  13. DOXORUBICIN [Suspect]
     Active Substance: DOXORUBICIN
     Indication: ACUTE LYMPHOCYTIC LEUKAEMIA
     Dosage: 13.2 MG, UNK
     Route: 042
     Dates: start: 20170522, end: 20170606
  14. CYTARABINE. [Suspect]
     Active Substance: CYTARABINE
     Indication: ACUTE LYMPHOCYTIC LEUKAEMIA
     Dosage: 1000 MG, UNK
     Route: 042
     Dates: start: 20170227
  15. CYTARABINE. [Suspect]
     Active Substance: CYTARABINE
     Dosage: 15 MG, UNK
     Route: 042
     Dates: start: 20170303
  16. CYTARABINE. [Suspect]
     Active Substance: CYTARABINE
     Dosage: 39 MG, UNK
     Route: 042
     Dates: start: 20161224
  17. METHYLPREDNISOLONE. [Suspect]
     Active Substance: METHYLPREDNISOLONE
     Indication: ACUTE LYMPHOCYTIC LEUKAEMIA
     Dosage: 30 MG, UNK
     Route: 048
     Dates: start: 20161104, end: 20161111

REACTIONS (1)
  - Febrile bone marrow aplasia [Recovered/Resolved]

NARRATIVE: CASE EVENT DATE: 20170614
